FAERS Safety Report 7690303-X (Version None)
Quarter: 2011Q3

REPORT INFORMATION
  Report Type: 
  Country: None (occurrence: None)
  Receive Date: 20110818
  Receipt Date: 20110809
  Transmission Date: 20111222
  Serious: Yes (Hospitalization)
  Sender: FDA-Public Use
  Company Number: FI-ELI_LILLY_AND_COMPANY-FI201106008451

PATIENT
  Sex: Female

DRUGS (13)
  1. HUMALOG [Suspect]
     Dosage: 22 U, QD
     Route: 058
  2. CALCICHEW-D3 FORTE [Concomitant]
     Dosage: 1 DF, BID
  3. FERROGLYCINE SULFATE COMPLEX [Concomitant]
     Dosage: 100 MG, BID
  4. SIMAVASTATIN [Concomitant]
     Dosage: 40 MG, QD
  5. LERCANIDIPINE [Concomitant]
     Dosage: 20 MG, QD
  6. HUMALOG [Suspect]
     Indication: TYPE 1 DIABETES MELLITUS
     Dosage: 22 U, QD
     Route: 058
  7. HUMALOG [Suspect]
     Dosage: 4 IU, OTHER
     Route: 058
     Dates: start: 20110622
  8. PENAMOX [Concomitant]
     Dosage: 200 MG, QD
  9. HUMALOG [Suspect]
     Dosage: 1.5 IU, OTHER
     Route: 058
     Dates: start: 20110622
  10. RAMIPRIL [Concomitant]
     Dosage: 10 MG, QD
  11. FURESIS [Concomitant]
     Dosage: 40 MG, BID
  12. OLMESARTAN MEDOXOMIL [Concomitant]
     Dosage: 10 MG, QD
  13. PANTOPRAZOLE [Concomitant]
     Dosage: 40 MG, QD

REACTIONS (3)
  - HYPERGLYCAEMIA [None]
  - EXPIRED DRUG ADMINISTERED [None]
  - KETOACIDOSIS [None]
